FAERS Safety Report 25887169 (Version 1)
Quarter: 2025Q4

REPORT INFORMATION
  Report Type: Spontaneous
  Country: US (occurrence: US)
  Receive Date: 20251006
  Receipt Date: 20251006
  Transmission Date: 20260118
  Serious: Yes (Death)
  Sender: FRESENIUS MEDICAL CARE
  Company Number: US-FMCRTG-FMC-2509-001513

PATIENT
  Age: 68 Year
  Sex: Female
  Weight: 89 kg

DRUGS (30)
  1. DELFLEX WITH DEXTROSE 1.5% LOW MAGNESIUM LOW CALCIUM [Suspect]
     Active Substance: CALCIUM CHLORIDE\DEXTROSE\MAGNESIUM CHLORIDE\SODIUM CHLORIDE\SODIUM LACTATE
     Indication: End stage renal disease
     Dosage: 6 DAYS-A-WEEK, CA 2.5 MEQ/L, MG 0.5 MEQ/L DEXTROSE DIALYSATE, EXCHANGES 4, FILL VOLUME 2000 ML, AVER
     Route: 033
  2. DELFLEX WITH DEXTROSE 2.5% LOW MAGNESIUM LOW CALCIUM [Suspect]
     Active Substance: CALCIUM CHLORIDE\DEXTROSE\MAGNESIUM CHLORIDE\SODIUM CHLORIDE\SODIUM LACTATE
     Indication: End stage renal disease
     Dosage: 6 DAYS-A-WEEK, CA 2.5 MEQ/L, MG 0.5 MEQ/L DEXTROSE DIALYSATE, EXCHANGES 4, FILL VOLUME 2000 ML, AVER
     Route: 033
  3. DELFLEX WITH DEXTROSE 4.25% LOW MAGNESIUM LOW CALCIUM [Suspect]
     Active Substance: CALCIUM CHLORIDE\DEXTROSE\MAGNESIUM CHLORIDE\SODIUM CHLORIDE\SODIUM LACTATE
     Indication: End stage renal disease
     Dosage: 6 DAYS-A-WEEK, CA 2.5 MEQ/L, MG 0.5 MEQ/L DEXTROSE DIALYSATE, EXCHANGES 4, FILL VOLUME 2000 ML, AVER
     Route: 033
  4. ACETAMINOPHEN [Concomitant]
     Active Substance: ACETAMINOPHEN
  5. AMLODIPINE [Concomitant]
     Active Substance: AMLODIPINE BESYLATE
  6. ASPIRIN [Concomitant]
     Active Substance: ASPIRIN
  7. CARVEDILOL [Concomitant]
     Active Substance: CARVEDILOL
  8. CLONIDINE [Concomitant]
     Active Substance: CLONIDINE
  9. CLOPIDOGREL [Concomitant]
     Active Substance: CLOPIDOGREL BISULFATE
  10. COLACE [Concomitant]
     Active Substance: DOCUSATE SODIUM
  11. FAMOTIDINE [Concomitant]
     Active Substance: FAMOTIDINE
  12. FUROSEMIDE [Concomitant]
     Active Substance: FUROSEMIDE
  13. GABAPENTIN [Concomitant]
     Active Substance: GABAPENTIN
  14. GENTAMICIN [Concomitant]
     Active Substance: GENTAMICIN
  15. HYDRALAZINE [Concomitant]
     Active Substance: HYDRALAZINE HYDROCHLORIDE
  16. HYDROXYZINE [Concomitant]
     Active Substance: HYDROXYZINE HYDROCHLORIDE
  17. INSULIN ASPART [Concomitant]
     Active Substance: INSULIN ASPART
  18. INSULIN GLARGINE [Concomitant]
     Active Substance: INSULIN GLARGINE
  19. LIPITOR [Concomitant]
     Active Substance: ATORVASTATIN CALCIUM
  20. LOSARTAN [Concomitant]
     Active Substance: LOSARTAN
  21. MELATONIN [Concomitant]
     Active Substance: MELATONIN
  22. MIRALAX [Concomitant]
     Active Substance: POLYETHYLENE GLYCOL 3350
  23. ASCORBIC ACID\BIOTIN\CALCIUM PANTOTHENATE\CYANOCOBALAMIN\FOLIC ACID\NI [Concomitant]
     Active Substance: ASCORBIC ACID\BIOTIN\CALCIUM PANTOTHENATE\CYANOCOBALAMIN\FOLIC ACID\NIACINAMIDE\PYRIDOXINE HYDROCHLO
  24. SERTRALINE [Concomitant]
     Active Substance: SERTRALINE HYDROCHLORIDE
  25. SEVELAMER [Concomitant]
     Active Substance: SEVELAMER
  26. SPIRONOLACTONE [Concomitant]
     Active Substance: SPIRONOLACTONE
  27. TRAMADOL [Concomitant]
     Active Substance: TRAMADOL
  28. HERBALS\TURMERIC [Concomitant]
     Active Substance: HERBALS\TURMERIC
  29. VELTASSA [Concomitant]
     Active Substance: PATIROMER
  30. VITAMIN D3 [Concomitant]
     Active Substance: CHOLECALCIFEROL

REACTIONS (1)
  - Cardiac arrest [Fatal]

NARRATIVE: CASE EVENT DATE: 20250912
